FAERS Safety Report 5996642-2 (Version None)
Quarter: 2008Q4

REPORT INFORMATION
  Report Type: 
  Country: None (occurrence: None)
  Receive Date: 20081204
  Receipt Date: 20081121
  Transmission Date: 20090506
  Serious: Yes (Other)
  Sender: FDA-Public Use
  Company Number: CHPA2008CA20942

PATIENT
  Age: 64 Year
  Sex: Female
  Weight: 81.6 kg

DRUGS (2)
  1. BUCKLEY'S DM (NCH)(DEXTROMETHORPHAN HYDROBROMIDE) SYRUP [Suspect]
     Indication: COUGH
     Dosage: 1 TO 2 TSP, QID, ORAL
     Route: 048
     Dates: start: 20081101, end: 20081108
  2. BUCKLEY'S DM (NCH)(DEXTROMETHORPHAN HYDROBROMIDE) SYRUP [Suspect]
     Indication: NASOPHARYNGITIS
     Dosage: 1 TO 2 TSP, QID, ORAL
     Route: 048
     Dates: start: 20081101, end: 20081108

REACTIONS (3)
  - BRONCHITIS [None]
  - CONDITION AGGRAVATED [None]
  - DRUG INEFFECTIVE [None]
